FAERS Safety Report 16096010 (Version 1)
Quarter: 2019Q1

REPORT INFORMATION
  Report Type: Spontaneous
  Country: US (occurrence: US)
  Receive Date: 20190320
  Receipt Date: 20190320
  Transmission Date: 20190418
  Serious: No
  Sender: FDA-Public Use
  Company Number: US-SHIRE-US201908963

PATIENT
  Sex: Female

DRUGS (1)
  1. VYVANSE [Suspect]
     Active Substance: LISDEXAMFETAMINE DIMESYLATE
     Indication: ATTENTION DEFICIT/HYPERACTIVITY DISORDER
     Dosage: 15 MILLIGRAM
     Route: 065

REACTIONS (8)
  - Memory impairment [Unknown]
  - Fatigue [Unknown]
  - Off label use [Unknown]
  - Therapeutic response shortened [Unknown]
  - Disturbance in attention [Unknown]
  - Somnolence [Unknown]
  - Feeling jittery [Unknown]
  - Product storage error [Unknown]
